FAERS Safety Report 4925926-1 (Version None)
Quarter: 2006Q1

REPORT INFORMATION
  Report Type: 
  Country: None (occurrence: None)
  Receive Date: 20060228
  Receipt Date: 20050414
  Transmission Date: 20060701
  Serious: Yes (Other)
  Sender: FDA-Public Use
  Company Number: US-GLAXOSMITHKLINE-A0554419A

PATIENT
  Age: 30 Year
  Sex: Female
  Weight: 77.3 kg

DRUGS (1)
  1. LAMICTAL [Suspect]
     Indication: BIPOLAR DISORDER
     Dosage: 25MG PER DAY
     Route: 048
     Dates: start: 20050310, end: 20050404

REACTIONS (2)
  - RASH GENERALISED [None]
  - SWELLING FACE [None]
